FAERS Safety Report 8165355-3 (Version None)
Quarter: 2012Q1

REPORT INFORMATION
  Report Type: 
  Country: None (occurrence: None)
  Receive Date: 20120227
  Receipt Date: 20110425
  Transmission Date: 20120608
  Serious: No
  Sender: FDA-Public Use
  Company Number: US-MYLANLABS-2011S1008432

PATIENT
  Age: 59 Year
  Sex: Female

DRUGS (9)
  1. FAMOTIDINE [Concomitant]
  2. BENAZEPRIL HYDROCHLORIDE [Concomitant]
  3. METOPROLOL [Concomitant]
     Indication: BLOOD PRESSURE
  4. FISH OIL [Concomitant]
  5. ASPIRIN [Concomitant]
  6. PLAVIX [Concomitant]
  7. GLIMEPIRIDE [Concomitant]
  8. LIPITOR [Concomitant]
     Indication: BLOOD CHOLESTEROL
  9. METFORMIN HCL [Suspect]
     Indication: TYPE 2 DIABETES MELLITUS
     Dates: start: 20110412

REACTIONS (2)
  - BLOOD GLUCOSE INCREASED [None]
  - DRUG INEFFECTIVE [None]
